FAERS Safety Report 9856814 (Version 3)
Quarter: 2014Q2

REPORT INFORMATION
  Report Type: Spontaneous
  Country: US (occurrence: US)
  Receive Date: 20140130
  Receipt Date: 20140430
  Transmission Date: 20141212
  Serious: No
  Sender: FDA-Public Use
  Company Number: US-INCYTE CORPORATION-2014IN000189

PATIENT
  Sex: Male
  Weight: 74.38 kg

DRUGS (13)
  1. JAKAFI [Suspect]
     Indication: MYELOFIBROSIS
     Dosage: 20 MG, BID
     Route: 048
     Dates: start: 201307
  2. PROCRIT                            /00909301/ [Concomitant]
  3. LUMIGAN [Concomitant]
     Route: 047
  4. LASIX                              /00032601/ [Concomitant]
     Dosage: 20 MG, UNK
  5. ASPIRIN [Concomitant]
     Dosage: 325 MG, UNK
  6. TEMAZEPAM [Concomitant]
     Dosage: 15 MG, UNK
  7. PRAMIPEXOLE HYDROCHLORIDE [Concomitant]
     Dosage: 0.125 MG, UNK
  8. MIRAPEX [Concomitant]
     Dosage: 0.125 MG, UNK
  9. TIMOLOL [Concomitant]
     Route: 047
  10. CVS VISION FORMULA TABLET [Concomitant]
  11. OMEPRAZOLE SODIUM [Concomitant]
     Dosage: 20 MG, UNK
  12. VITAMIN D NOS [Concomitant]
     Dosage: 2000 UT, UNK
  13. VITAMIN B12                        /00056201/ [Concomitant]
     Dosage: 500 MG, UNK

REACTIONS (2)
  - Basal cell carcinoma [Unknown]
  - Rhinorrhoea [Unknown]
